FAERS Safety Report 7765278-5 (Version None)
Quarter: 2011Q3

REPORT INFORMATION
  Report Type: 
  Country: None (occurrence: None)
  Receive Date: 20110921
  Receipt Date: 20110915
  Transmission Date: 20111222
  Serious: Yes (Other)
  Sender: FDA-Public Use
  Company Number: US-TEVA-300585USA

PATIENT
  Sex: Female

DRUGS (2)
  1. PARAGARD T 380A [Suspect]
     Indication: CONTRACEPTION
     Route: 015
     Dates: start: 20110303
  2. HORMONAL BIRTH CONTROL PILL [Suspect]

REACTIONS (3)
  - DEEP VEIN THROMBOSIS [None]
  - AUTOIMMUNE DISORDER [None]
  - RASH [None]
